FAERS Safety Report 21674119 (Version 1)
Quarter: 2022Q4

REPORT INFORMATION
  Report Type: Spontaneous
  Country: CN (occurrence: CN)
  Receive Date: 20221202
  Receipt Date: 20221202
  Transmission Date: 20230113
  Serious: Yes (Other)
  Sender: FDA-Public Use
  Company Number: CN-PFIZER INC-PV202200114940

PATIENT
  Age: 83 Year
  Sex: Male
  Weight: 83 kg

DRUGS (2)
  1. CYTARABINE [Suspect]
     Active Substance: CYTARABINE
     Indication: Leukaemia
     Dosage: 15 MG, 2X/DAY
     Route: 058
     Dates: start: 20221105, end: 20221118
  2. OMACETAXINE MEPESUCCINATE [Suspect]
     Active Substance: OMACETAXINE MEPESUCCINATE
     Indication: Leukaemia
     Dosage: 1 MG, 1X/DAY
     Route: 041
     Dates: start: 20221105, end: 20221128

REACTIONS (2)
  - Platelet count decreased [Recovering/Resolving]
  - Haemorrhage [Unknown]

NARRATIVE: CASE EVENT DATE: 20221108
